FAERS Safety Report 18278659 (Version 2)
Quarter: 2020Q3

REPORT INFORMATION
  Report Type: Spontaneous
  Country: US (occurrence: US)
  Receive Date: 20200917
  Receipt Date: 20200927
  Transmission Date: 20201103
  Serious: Yes (Hospitalization, Other)
  Sender: FDA-Public Use
  Company Number: US-SA-2020SA250669

PATIENT

DRUGS (4)
  1. ASPIRIN [ACETYLSALICYLIC ACID] [Concomitant]
     Active Substance: ASPIRIN
     Indication: PERCUTANEOUS CORONARY INTERVENTION
  2. ASPIRIN [ACETYLSALICYLIC ACID] [Concomitant]
     Active Substance: ASPIRIN
     Indication: ARTERIAL STENT INSERTION
  3. CLOPIDOGREL BISULFATE. [Suspect]
     Active Substance: CLOPIDOGREL BISULFATE
     Indication: ARTERIAL STENT INSERTION
  4. CLOPIDOGREL BISULFATE. [Suspect]
     Active Substance: CLOPIDOGREL BISULFATE
     Indication: PERCUTANEOUS CORONARY INTERVENTION

REACTIONS (7)
  - Arthralgia [Recovering/Resolving]
  - Conjunctival hyperaemia [Recovering/Resolving]
  - Skin lesion [Recovering/Resolving]
  - Dermatitis bullous [Recovering/Resolving]
  - Bullous haemorrhagic dermatosis [Recovering/Resolving]
  - Neutrophilic dermatosis [Recovering/Resolving]
  - Acute febrile neutrophilic dermatosis [Recovering/Resolving]
